FAERS Safety Report 7489071-6 (Version None)
Quarter: 2011Q2

REPORT INFORMATION
  Report Type: 
  Country: None (occurrence: None)
  Receive Date: 20110518
  Receipt Date: 20110510
  Transmission Date: 20111010
  Serious: Yes (Death, Hospitalization)
  Sender: FDA-Public Use
  Company Number: US-CELGENEUS-163-21880-07081157

PATIENT
  Age: 94 Year
  Sex: Female
  Weight: 85.9 kg

DRUGS (8)
  1. CENTRUM [Concomitant]
     Route: 065
  2. REVLIMID [Suspect]
     Dosage: 50 MILLIGRAM
     Route: 048
     Dates: start: 20070802, end: 20070806
  3. MAGNESIUM SULFATE [Concomitant]
     Route: 065
  4. DIGOXIN [Concomitant]
     Route: 065
  5. CALCIUM CARBONATE [Concomitant]
     Route: 065
  6. KLOR-CON [Concomitant]
     Route: 065
  7. LASIX [Concomitant]
     Route: 065
  8. METOPROLOL TARTRATE [Concomitant]
     Route: 065

REACTIONS (2)
  - THROMBOCYTOPENIA [None]
  - PULMONARY OEDEMA [None]
